FAERS Safety Report 25350649 (Version 2)
Quarter: 2025Q2

REPORT INFORMATION
  Report Type: Report from Study
  Country: US (occurrence: US)
  Receive Date: 20250523
  Receipt Date: 20250601
  Transmission Date: 20250716
  Serious: No
  Sender: SANDOZ
  Company Number: US-SANDOZ-SDZ2025US034971

PATIENT
  Age: 72 Year
  Sex: Female

DRUGS (1)
  1. GLATOPA [Suspect]
     Active Substance: GLATIRAMER ACETATE
     Indication: Multiple sclerosis
     Dosage: 40 MG, Q48H
     Route: 058

REACTIONS (4)
  - Wrong technique in product usage process [Unknown]
  - Device mechanical issue [Unknown]
  - Drug administered in wrong device [Unknown]
  - Device issue [Unknown]

NARRATIVE: CASE EVENT DATE: 20250519
